FAERS Safety Report 8491238-5 (Version None)
Quarter: 2012Q3

REPORT INFORMATION
  Report Type: 
  Country: None (occurrence: None)
  Receive Date: 20120706
  Receipt Date: 20120630
  Transmission Date: 20120928
  Serious: Yes (Other)
  Sender: FDA-Public Use
  Company Number: PHHY2012BR056955

PATIENT
  Sex: Female

DRUGS (3)
  1. FORMOTEROL FUMARATE [Suspect]
  2. DIOVAN [Suspect]
  3. METFORMIN HCL [Concomitant]

REACTIONS (7)
  - CHEST PAIN [None]
  - GAIT DISTURBANCE [None]
  - DIABETES MELLITUS [None]
  - OSTEOPOROSIS [None]
  - PAIN IN EXTREMITY [None]
  - DYSPNOEA [None]
  - RENAL INJURY [None]
